FAERS Safety Report 11638415 (Version 1)
Quarter: 2015Q4

REPORT INFORMATION
  Report Type: Spontaneous
  Country: US (occurrence: US)
  Receive Date: 20151016
  Receipt Date: 20151016
  Transmission Date: 20160304
  Serious: Yes (Death, Hospitalization, Other)
  Sender: FDA-Public Use
  Company Number: US-JNJFOC-20151005885

PATIENT

DRUGS (11)
  1. CYCLOPHOSPHAMIDE. [Suspect]
     Active Substance: CYCLOPHOSPHAMIDE
     Indication: PLASMA CELL MYELOMA RECURRENT
     Dosage: OVER 3 HOURS EVERY 12 HOURS ON DAYS 1-3 IN CVAD REGIMEN
     Route: 042
  2. VINCRISTINE [Suspect]
     Active Substance: VINCRISTINE
     Indication: PLASMA CELL MYELOMA RECURRENT
     Dosage: CONTINOUS INTRAVENOUS INFUSION OVER 48 H ON DAY 4 AND 2 MG INTRAVENOUSLY (IV) OVER 10 MIN ON DAY 11
     Route: 042
  3. DOXORUBICIN HYDROCHLORIDE. [Suspect]
     Active Substance: DOXORUBICIN HYDROCHLORIDE
     Indication: PLASMA CELL MYELOMA RECURRENT
     Dosage: CONTINUOUS INTRAVENOUS INFUSION OVER 24 HOURS ON DAY 1-4 IN VTD-PACE REGIMEN
     Route: 042
  4. DEXAMETHASONE. [Suspect]
     Active Substance: DEXAMETHASONE
     Indication: PLASMA CELL MYELOMA RECURRENT
     Dosage: ON DAY 1 TO 4 IN VTD-PACE THERAPY AND ON DAY 1-5 AND 11-14 IN CVAD THERAPY
     Route: 048
  5. ETOPOSIDE. [Suspect]
     Active Substance: ETOPOSIDE
     Indication: PLASMA CELL MYELOMA RECURRENT
     Dosage: ON DAY 1 TO 4 IN VTD-PACE REGIMEN
     Route: 042
  6. BORTEZOMIB [Suspect]
     Active Substance: BORTEZOMIB
     Indication: PLASMA CELL MYELOMA RECURRENT
     Dosage: ON DAYS 1, 4, 8, 11 IN VTD-PACE REGIMEN
     Route: 050
  7. DOXORUBICIN HYDROCHLORIDE. [Suspect]
     Active Substance: DOXORUBICIN HYDROCHLORIDE
     Indication: PLASMA CELL MYELOMA RECURRENT
     Dosage: CONTINUOUS INTRAVENOUS INFUSION OVER 48 HOUR ON DAY 4 IN CVAD REGIMEN
     Route: 042
  8. THALIDOMIDE [Suspect]
     Active Substance: THALIDOMIDE
     Indication: PLASMA CELL MYELOMA RECURRENT
     Dosage: IN VTD-PACE REGIMEN
     Route: 065
  9. CISPLATIN. [Suspect]
     Active Substance: CISPLATIN
     Indication: PLASMA CELL MYELOMA RECURRENT
     Dosage: OVER 24 HOURS ON DAY 1 TO 4 IN VTD-PACE THERAPY
     Route: 042
  10. CYCLOPHOSPHAMIDE. [Suspect]
     Active Substance: CYCLOPHOSPHAMIDE
     Indication: PLASMA CELL MYELOMA RECURRENT
     Dosage: OVER 24 HOURS ON DAY 1 TO 4 IN VTD-PACE THERAPY
     Route: 042
  11. THALIDOMIDE [Suspect]
     Active Substance: THALIDOMIDE
     Indication: PLASMA CELL MYELOMA RECURRENT
     Dosage: ON DAY 1 TO 4 IN VTD-PACE REGIMEN
     Route: 065

REACTIONS (5)
  - Hospitalisation [Unknown]
  - Febrile neutropenia [Unknown]
  - Adverse event [Unknown]
  - Embolism venous [Unknown]
  - Death [Fatal]
